FAERS Safety Report 16414742 (Version 1)
Quarter: 2019Q2

REPORT INFORMATION
  Report Type: Spontaneous
  Country: US (occurrence: US)
  Receive Date: 20190503
  Receipt Date: 20190503
  Transmission Date: 20190711
  Serious: No
  Sender: FDA-Public Use
  Company Number: None

PATIENT
  Age: 80 Year
  Sex: Female
  Weight: 74.84 kg

DRUGS (16)
  1. ENALAPRIL [Concomitant]
     Active Substance: ENALAPRIL
  2. CALCIUM VITAMINS C+D [Concomitant]
  3. RALOXIFEN [Concomitant]
     Active Substance: RALOXIFENE
  4. MAGNESIUM [Concomitant]
     Active Substance: MAGNESIUM
  5. MIRTAZAPINE. [Concomitant]
     Active Substance: MIRTAZAPINE
  6. BABY ASPIRIN [Concomitant]
     Active Substance: ASPIRIN
  7. OMEPRAZOLE. [Concomitant]
     Active Substance: OMEPRAZOLE
  8. METFORMIN [Concomitant]
     Active Substance: METFORMIN HYDROCHLORIDE
  9. PROTOZONE [Concomitant]
  10. GAS-X [Concomitant]
     Active Substance: DIMETHICONE
  11. SIMVASTATIN. [Concomitant]
     Active Substance: SIMVASTATIN
  12. AMLODIPINE [Concomitant]
     Active Substance: AMLODIPINE BESYLATE
  13. TRIAMCINOLONE 0.01% OINT [Suspect]
     Active Substance: TRIAMCINOLONE
     Indication: LOCALISED INFECTION
     Dosage: ?          QUANTITY:0.1 % PERCENT;?
     Route: 061
     Dates: start: 20190308, end: 20190419
  14. CLONAZAPAM [Concomitant]
     Active Substance: CLONAZEPAM
  15. BYSTOLIC [Concomitant]
     Active Substance: NEBIVOLOL HYDROCHLORIDE
  16. METAMUCIL [Concomitant]
     Active Substance: PLANTAGO SEED

REACTIONS (4)
  - Nausea [None]
  - Abdominal discomfort [None]
  - Abdominal pain upper [None]
  - Stoma site pain [None]

NARRATIVE: CASE EVENT DATE: 20190330
